FAERS Safety Report 5863958-X (Version None)
Quarter: 2008Q3

REPORT INFORMATION
  Report Type: 
  Country: None (occurrence: None)
  Receive Date: 20080829
  Receipt Date: 20080820
  Transmission Date: 20090109
  Serious: Yes (Death, Hospitalization, Other)
  Sender: FDA-Public Use
  Company Number: US-JNJFOC-20071003696

PATIENT
  Sex: Male
  Weight: 69 kg

DRUGS (8)
  1. REMICADE [Suspect]
     Indication: CROHN'S DISEASE
     Route: 042
  2. REMICADE [Suspect]
     Indication: COLITIS ULCERATIVE
     Dosage: 19 INFUSIONS ADMINISTERED BETWEEN 10-JUL-2002 AND 7-MAR-2006
     Route: 042
  3. HUMIRA [Suspect]
  4. HUMIRA [Suspect]
     Indication: COLITIS ULCERATIVE
  5. MERCAPTOPURINE [Suspect]
  6. MERCAPTOPURINE [Suspect]
     Indication: COLITIS ULCERATIVE
  7. ASACOL [Concomitant]
  8. ASACOL [Concomitant]

REACTIONS (1)
  - HEPATOSPLENIC T-CELL LYMPHOMA [None]
